FAERS Safety Report 5393955-2 (Version None)
Quarter: 2007Q3

REPORT INFORMATION
  Report Type: 
  Country: None (occurrence: None)
  Receive Date: 20070723
  Receipt Date: 20061130
  Transmission Date: 20080115
  Serious: No
  Sender: FDA-Public Use
  Company Number: A0629695A

PATIENT
  Sex: Female

DRUGS (23)
  1. AVANDIA [Suspect]
     Dosage: 4MG PER DAY
     Route: 048
     Dates: start: 20060701
  2. LANTUS [Concomitant]
  3. HUMALOG [Concomitant]
  4. TRILEPTAL [Concomitant]
  5. NEXIUM [Concomitant]
  6. CYMBALTA [Concomitant]
  7. SINGULAIR [Concomitant]
  8. FLEXERIL [Concomitant]
  9. ADVAIR DISKUS 100/50 [Concomitant]
  10. ALBUTEROL [Concomitant]
  11. ROZEREM [Concomitant]
  12. TOPROL-XL [Concomitant]
  13. COZAAR [Concomitant]
  14. NORVASC [Concomitant]
  15. REMERON [Concomitant]
  16. CLONAZEPAM [Concomitant]
  17. LASIX [Concomitant]
  18. BENADRYL [Concomitant]
  19. ZOVIRAX [Concomitant]
  20. NITROGLYCERIN [Concomitant]
  21. NITROGLYCERIN [Concomitant]
  22. HYDROCODONE BITARTRATE [Concomitant]
  23. REGLAN [Concomitant]

REACTIONS (1)
  - NAUSEA [None]
